FAERS Safety Report 10870120 (Version 1)
Quarter: 2015Q1

REPORT INFORMATION
  Report Type: Spontaneous
  Country: GB (occurrence: GB)
  Receive Date: 20150226
  Receipt Date: 20150226
  Transmission Date: 20150721
  Serious: Yes (Other)
  Sender: FDA-Public Use
  Company Number: GB-BAUSCH-BL-2015-003068

PATIENT
  Age: 54 Year
  Sex: Female
  Weight: 63.5 kg

DRUGS (4)
  1. MENOPACE [Concomitant]
     Indication: PRODUCT USED FOR UNKNOWN INDICATION
     Dates: start: 2012
  2. QUETIAPINE [Concomitant]
     Active Substance: QUETIAPINE
     Indication: PRODUCT USED FOR UNKNOWN INDICATION
     Dates: start: 2009
  3. PREDNISOLONE. [Suspect]
     Active Substance: PREDNISOLONE
     Indication: PERIPHERAL SENSORY NEUROPATHY
     Route: 065
     Dates: start: 20140623, end: 20140926
  4. TRANYLCYPROMINE [Concomitant]
     Active Substance: TRANYLCYPROMINE
     Indication: PRODUCT USED FOR UNKNOWN INDICATION
     Dates: start: 2009

REACTIONS (35)
  - Thirst [Recovered/Resolved]
  - Loss of libido [Not Recovered/Not Resolved]
  - Cystitis [Recovered/Resolved]
  - Hypoaesthesia [Not Recovered/Not Resolved]
  - Bradyphrenia [Recovered/Resolved]
  - Contusion [Recovered/Resolved]
  - Disorientation [Recovered/Resolved]
  - Eczema [Recovered/Resolved]
  - Fatigue [Not Recovered/Not Resolved]
  - Anorgasmia [Not Recovered/Not Resolved]
  - Pruritus [Recovered/Resolved]
  - Asthenia [Recovered/Resolved]
  - Photophobia [Recovered/Resolved]
  - Rhinorrhoea [Recovered/Resolved]
  - Skin fissures [Recovered/Resolved]
  - Eye pain [Recovered/Resolved]
  - Ocular hyperaemia [Recovered/Resolved]
  - Body temperature fluctuation [Recovered/Resolved]
  - Constipation [Recovered/Resolved]
  - Depression [Not Recovered/Not Resolved]
  - Genital herpes [Recovered/Resolved]
  - Abnormal sensation in eye [Recovered/Resolved]
  - Insomnia [Recovered/Resolved]
  - Alopecia [Recovered/Resolved]
  - Impaired healing [Recovered/Resolved]
  - Memory impairment [Not Recovered/Not Resolved]
  - Skin haemorrhage [Recovered/Resolved]
  - Tinnitus [Recovered/Resolved]
  - Cognitive disorder [Recovering/Resolving]
  - Condition aggravated [Unknown]
  - Elevated mood [Recovered/Resolved]
  - Hyperaesthesia [Recovered/Resolved]
  - Skin irritation [Recovered/Resolved]
  - Slow response to stimuli [Recovered/Resolved]
  - Lacrimation increased [Recovered/Resolved]

NARRATIVE: CASE EVENT DATE: 201406
